FAERS Safety Report 17203249 (Version 5)
Quarter: 2020Q2

REPORT INFORMATION
  Report Type: Report from Study
  Country: US (occurrence: US)
  Receive Date: 20191226
  Receipt Date: 20200501
  Transmission Date: 20200713
  Serious: Yes (Hospitalization)
  Sender: FDA-Public Use
  Company Number: US-JNJFOC-20191233515

PATIENT
  Age: 68 Year
  Sex: Female
  Weight: 92.16 kg

DRUGS (14)
  1. PANTOPRAZOLE [Concomitant]
     Active Substance: PANTOPRAZOLE
     Indication: GASTROINTESTINAL DISORDER THERAPY
     Route: 048
     Dates: start: 20191225
  2. DOXYCYCLINE. [Concomitant]
     Active Substance: DOXYCYCLINE
     Indication: INFECTION PROPHYLAXIS
     Route: 048
     Dates: start: 20191209, end: 20200105
  3. ESKETAMINE [Suspect]
     Active Substance: ESKETAMINE
     Indication: DEPRESSION
     Dates: start: 20170831
  4. ASPRIN [Concomitant]
     Active Substance: ASPIRIN
     Indication: THROMBOSIS PROPHYLAXIS
     Route: 048
     Dates: start: 20191209, end: 20200105
  5. SUCRALFATE. [Concomitant]
     Active Substance: SUCRALFATE
     Indication: GASTROOESOPHAGEAL REFLUX DISEASE
     Route: 048
     Dates: start: 201301, end: 20191224
  6. REXULTI [Concomitant]
     Active Substance: BREXPIPRAZOLE
     Route: 048
     Dates: start: 20191018, end: 20200203
  7. DULOXETINE. [Concomitant]
     Active Substance: DULOXETINE
     Indication: MAJOR DEPRESSION
     Route: 048
     Dates: start: 20181219
  8. REXULTI [Concomitant]
     Active Substance: BREXPIPRAZOLE
     Indication: MAJOR DEPRESSION
     Route: 048
     Dates: start: 20191003, end: 20191017
  9. HYDROCODONE [Concomitant]
     Active Substance: HYDROCODONE
     Indication: PROCEDURAL PAIN
     Route: 048
     Dates: start: 20191209, end: 20191231
  10. IBUPROFEN. [Concomitant]
     Active Substance: IBUPROFEN
     Indication: OSTEOARTHRITIS
     Dosage: 2 TAB
     Dates: start: 201501
  11. ALBUTEROL. [Concomitant]
     Active Substance: ALBUTEROL
     Indication: ASTHMA
     Dosage: 1 PUFF
     Dates: start: 1990
  12. VITAMIN C [Concomitant]
     Active Substance: ASCORBIC ACID
     Indication: NUTRITIONAL SUPPLEMENTATION
     Route: 048
     Dates: start: 20191204, end: 20191214
  13. LISINOPRIL. [Concomitant]
     Active Substance: LISINOPRIL
     Indication: HYPERTENSION
     Route: 048
     Dates: start: 201401
  14. MELOXICAM. [Concomitant]
     Active Substance: MELOXICAM
     Indication: OSTEOARTHRITIS
     Dates: start: 20181212

REACTIONS (2)
  - Osteoarthritis [Recovered/Resolved]
  - Osteoarthritis [Recovered/Resolved]

NARRATIVE: CASE EVENT DATE: 20191121
